FAERS Safety Report 4531892-3 (Version None)
Quarter: 2004Q4

REPORT INFORMATION
  Report Type: 
  Country: None (occurrence: None)
  Receive Date: 20041220
  Receipt Date: 20040818
  Transmission Date: 20050328
  Serious: Yes (Other)
  Sender: FDA-Public Use
  Company Number: US-GLAXOSMITHKLINE-A0522668A

PATIENT
  Sex: Male

DRUGS (3)
  1. TRIZIVIR [Suspect]
     Indication: HIV INFECTION
     Route: 048
  2. MULTIVITAMIN [Concomitant]
  3. MILK THISTLE [Concomitant]

REACTIONS (1)
  - HEPATIC ENZYME INCREASED [None]
